FAERS Safety Report 6740582-8 (Version None)
Quarter: 2010Q2

REPORT INFORMATION
  Report Type: 
  Country: None (occurrence: None)
  Receive Date: 20100525
  Receipt Date: 20100511
  Transmission Date: 20101027
  Serious: Yes (Other)
  Sender: FDA-Public Use
  Company Number: US-MYLANLABS-2010S1008277

PATIENT
  Age: 56 Year
  Sex: Female

DRUGS (1)
  1. TAMOXIFEN CITRATE [Suspect]
     Indication: BREAST CANCER METASTATIC
     Route: 065
     Dates: start: 19970101

REACTIONS (2)
  - RHABDOMYOSARCOMA [None]
  - UTERINE CANCER [None]
